FAERS Safety Report 7069713-X (Version None)
Quarter: 2010Q4

REPORT INFORMATION
  Report Type: 
  Country: None (occurrence: None)
  Receive Date: 20101028
  Receipt Date: 20100817
  Transmission Date: 20110411
  Serious: No
  Sender: FDA-Public Use
  Company Number: US-WYE-H15159310

PATIENT
  Sex: Female
  Weight: 45.4 kg

DRUGS (6)
  1. PHOSPHOLINE IODIDE [Suspect]
     Indication: EYE OPERATION COMPLICATION
     Dosage: 1 DROP IN LEFT EYE ONCE DAILY
     Route: 047
     Dates: start: 20080617
  2. PHOSPHOLINE IODIDE [Suspect]
     Dosage: 1 DROP IN LEFT EYE ONCE DAILY
     Route: 047
  3. CYTOMEL [Concomitant]
     Indication: HYPOTHYROIDISM
     Route: 048
  4. VERAPAMIL [Concomitant]
     Indication: HYPERTENSION
     Route: 048
  5. LAMICTAL [Concomitant]
     Indication: CONVULSION
     Route: 048
  6. TOPAMAX [Concomitant]
     Indication: CONVULSION
     Route: 048

REACTIONS (5)
  - BLEPHAROSPASM [None]
  - EXPIRED DRUG ADMINISTERED [None]
  - EYE DISORDER [None]
  - INSTILLATION SITE PAIN [None]
  - VISION BLURRED [None]
